FAERS Safety Report 5158299-2 (Version None)
Quarter: 2006Q4

REPORT INFORMATION
  Report Type: 
  Country: None (occurrence: None)
  Receive Date: 20061128
  Receipt Date: 20061116
  Transmission Date: 20070319
  Serious: Yes (Hospitalization, Other)
  Sender: FDA-Public Use
  Company Number: PHHO2006US19593

PATIENT
  Age: 70 Year
  Sex: Female

DRUGS (1)
  1. LETROZOLE [Suspect]
     Indication: BREAST CANCER METASTATIC
     Dosage: 2.5MG DAILY
     Route: 048
     Dates: start: 20040617

REACTIONS (7)
  - ASTHENIA [None]
  - BONE DISORDER [None]
  - CONCOMITANT DISEASE PROGRESSION [None]
  - FATIGUE [None]
  - HYPONATRAEMIA [None]
  - POLYDIPSIA [None]
  - POLYURIA [None]
